FAERS Safety Report 7527529-1 (Version None)
Quarter: 2011Q2

REPORT INFORMATION
  Report Type: 
  Country: None (occurrence: None)
  Receive Date: 20110607
  Receipt Date: 20110510
  Transmission Date: 20111010
  Serious: No
  Sender: FDA-Public Use
  Company Number: US-JNJFOC-20110504732

PATIENT
  Sex: Female
  Weight: 43.09 kg

DRUGS (1)
  1. INVEGA SUSTENNA [Suspect]
     Indication: SCHIZOPHRENIA
     Dosage: 156 MG AND 36 MG
     Route: 030
     Dates: start: 20110101, end: 20110301

REACTIONS (5)
  - AMENORRHOEA [None]
  - MUSCLE TWITCHING [None]
  - WEIGHT INCREASED [None]
  - GALACTORRHOEA [None]
  - HYPOAESTHESIA ORAL [None]
